FAERS Safety Report 5457279-7 (Version None)
Quarter: 2007Q3

REPORT INFORMATION
  Report Type: 
  Country: None (occurrence: None)
  Receive Date: 20070918
  Receipt Date: 20070228
  Transmission Date: 20080115
  Serious: No
  Sender: FDA-Public Use
  Company Number: US-ASTRAZENECA-2007UW02621

PATIENT
  Age: 50 Year
  Sex: Male
  Weight: 97.3 kg

DRUGS (2)
  1. SEROQUEL [Suspect]
     Indication: SCHIZOPHRENIA
     Route: 048
     Dates: start: 20000101
  2. HALDOL [Concomitant]

REACTIONS (12)
  - ANXIETY [None]
  - ASTHENIA [None]
  - BLOOD CHOLESTEROL INCREASED [None]
  - DELUSION [None]
  - DEPRESSION [None]
  - ERECTILE DYSFUNCTION [None]
  - HALLUCINATION [None]
  - PANIC ATTACK [None]
  - PARANOIA [None]
  - TREMOR [None]
  - TYPE 2 DIABETES MELLITUS [None]
  - WEIGHT DECREASED [None]
